FAERS Safety Report 9266849 (Version 1)
Quarter: 2013Q2

REPORT INFORMATION
  Report Type: Spontaneous
  Country: KR (occurrence: KR)
  Receive Date: 20130502
  Receipt Date: 20130502
  Transmission Date: 20140414
  Serious: Yes (Other)
  Sender: FDA-Public Use
  Company Number: KR-JNJFOC-20130414571

PATIENT
  Age: 24 Month
  Sex: 0

DRUGS (1)
  1. CHILDREN^S TYLENOL [Suspect]
     Indication: MALAISE
     Route: 048
     Dates: start: 201304

REACTIONS (4)
  - Flatulence [Unknown]
  - Ocular icterus [Unknown]
  - Decreased appetite [Unknown]
  - Pallor [Unknown]
